FAERS Safety Report 15707033 (Version 1)
Quarter: 2018Q4

REPORT INFORMATION
  Report Type: Spontaneous
  Country: FR (occurrence: FR)
  Receive Date: 20181210
  Receipt Date: 20181210
  Transmission Date: 20190205
  Serious: Yes (Other)
  Sender: FDA-Public Use
  Company Number: FR-ABBVIE-18K-056-2585809-00

PATIENT
  Age: 39 Year
  Sex: Female
  Weight: 62 kg

DRUGS (1)
  1. HUMIRA [Suspect]
     Active Substance: ADALIMUMAB
     Indication: CROHN^S DISEASE
     Route: 058
     Dates: start: 20181115, end: 20181115

REACTIONS (5)
  - Pharyngeal paraesthesia [Recovered/Resolved]
  - Malaise [Recovered/Resolved]
  - Musculoskeletal stiffness [Recovered/Resolved]
  - Paraesthesia oral [Recovered/Resolved]
  - Myalgia [Recovered/Resolved]

NARRATIVE: CASE EVENT DATE: 20181115
